FAERS Safety Report 5002514-2 (Version None)
Quarter: 2006Q2

REPORT INFORMATION
  Report Type: 
  Country: None (occurrence: None)
  Receive Date: 20060515
  Receipt Date: 20050829
  Transmission Date: 20061013
  Serious: Yes (Hospitalization)
  Sender: FDA-Public Use
  Company Number: US-MERCK-0508USA04767

PATIENT
  Age: 62 Year
  Sex: Female
  Weight: 82 kg

DRUGS (2)
  1. VIOXX [Suspect]
     Indication: OSTEOARTHRITIS
     Route: 048
     Dates: start: 20000523, end: 20010101
  2. VIOXX [Suspect]
     Route: 048
     Dates: start: 20000523, end: 20010101

REACTIONS (10)
  - ATELECTASIS [None]
  - CEREBROVASCULAR ACCIDENT [None]
  - DIABETES MELLITUS [None]
  - DIAPHRAGMATIC DISORDER [None]
  - HYPERTENSION [None]
  - INSOMNIA [None]
  - OSTEOPOROSIS [None]
  - PLEURAL EFFUSION [None]
  - RIB FRACTURE [None]
  - SCOLIOSIS [None]
